FAERS Safety Report 11950532 (Version 1)
Quarter: 2016Q1

REPORT INFORMATION
  Report Type: Spontaneous
  Country: US (occurrence: None)
  Receive Date: 20160122
  Receipt Date: 20160122
  Transmission Date: 20160526
  Serious: No
  Sender: FDA-Public Use
  Company Number: None

PATIENT
  Age: 43 Year
  Sex: Female

DRUGS (1)
  1. COPAXONE [Suspect]
     Active Substance: GLATIRAMER ACETATE

REACTIONS (8)
  - Injection site induration [None]
  - Nausea [None]
  - Erythema [None]
  - Rash generalised [None]
  - Injection site haemorrhage [None]
  - Dysphagia [None]
  - Chills [None]
  - Tremor [None]

NARRATIVE: CASE EVENT DATE: 20160120
